FAERS Safety Report 18871431 (Version 1)
Quarter: 2021Q1

REPORT INFORMATION
  Report Type: Spontaneous
  Country: US (occurrence: US)
  Receive Date: 20210209
  Receipt Date: 20210209
  Transmission Date: 20210420
  Serious: Yes (Death, Life-Threatening, Hospitalization)
  Sender: FDA-Public Use
  Company Number: None

PATIENT
  Age: 85 Year
  Sex: Male
  Weight: 80.2 kg

DRUGS (1)
  1. APIXABAN [Suspect]
     Active Substance: APIXABAN
     Indication: ATRIAL FIBRILLATION
     Route: 048
     Dates: start: 20200122, end: 20201119

REACTIONS (14)
  - Intraventricular haemorrhage [None]
  - Pupillary reflex impaired [None]
  - Brain death [None]
  - Unresponsive to stimuli [None]
  - Hemiplegia [None]
  - Brain midline shift [None]
  - Brain oedema [None]
  - Miosis [None]
  - Cerebral infarction [None]
  - Brain injury [None]
  - Hypopnoea [None]
  - Hydrocephalus [None]
  - Areflexia [None]
  - Cerebral haemorrhage [None]

NARRATIVE: CASE EVENT DATE: 20201119
